FAERS Safety Report 4408435-8 (Version None)
Quarter: 2004Q3

REPORT INFORMATION
  Report Type: 
  Country: None (occurrence: None)
  Receive Date: 20040723
  Receipt Date: 20040712
  Transmission Date: 20050211
  Serious: Yes (Hospitalization)
  Sender: FDA-Public Use
  Company Number: HQWYE858306FEB04

PATIENT
  Age: 57 Year
  Sex: Female

DRUGS (3)
  1. TAZOCIN (PIPERACILLIN/ TAZOBACTAM, INJECTION) [Suspect]
     Indication: ESCHERICHIA URINARY TRACT INFECTION
     Dosage: 1.25 GRAMS DAILY
     Route: 041
     Dates: start: 20040203, end: 20040203
  2. WARFARIN (WARFARIN) [Concomitant]
  3. LASIX [Concomitant]

REACTIONS (2)
  - ASTHMA [None]
  - COUGH [None]
